FAERS Safety Report 20375345 (Version 2)
Quarter: 2023Q2

REPORT INFORMATION
  Report Type: Report from Study
  Country: AU (occurrence: AU)
  Receive Date: 20220125
  Receipt Date: 20230502
  Transmission Date: 20230722
  Serious: Yes (Hospitalization, Other)
  Sender: FDA-Public Use
  Company Number: AU-PFIZER INC-202200115586

PATIENT
  Age: 68 Year
  Sex: Male

DRUGS (5)
  1. FLUCONAZOLE [Suspect]
     Active Substance: FLUCONAZOLE
     Indication: Vascular graft infection
     Dosage: UNK
     Route: 065
  2. CIPROFLOXACIN [Suspect]
     Active Substance: CIPROFLOXACIN
     Indication: Vascular graft infection
     Dosage: UNK
     Route: 065
  3. COTRIMOXAZOLE [Suspect]
     Active Substance: SULFAMETHOXAZOLE\TRIMETHOPRIM
     Indication: Vascular graft infection
     Dosage: UNK
     Route: 065
  4. PRISTINAMYCIN [Suspect]
     Active Substance: PRISTINAMYCIN
     Indication: Vascular graft infection
     Dosage: UNK
     Route: 065
  5. COTRIMOXAZOLE [Suspect]
     Active Substance: SULFAMETHOXAZOLE\TRIMETHOPRIM
     Indication: Graft infection
     Dosage: UNK
     Route: 065

REACTIONS (4)
  - Acute kidney injury [Unknown]
  - Liver injury [Unknown]
  - Liver function test abnormal [Unknown]
  - Metabolic acidosis [Unknown]
